FAERS Safety Report 8095720-4 (Version None)
Quarter: 2012Q1

REPORT INFORMATION
  Report Type: 
  Country: None (occurrence: None)
  Receive Date: 20120129
  Receipt Date: 20111228
  Transmission Date: 20120608
  Serious: No
  Sender: FDA-Public Use
  Company Number: US-ABBOTT-11P-163-0887481-00

PATIENT
  Sex: Female
  Weight: 91.708 kg

DRUGS (2)
  1. VITAMIN TAB [Concomitant]
     Indication: VITAMIN SUPPLEMENTATION
  2. HUMIRA [Suspect]
     Indication: PSORIATIC ARTHROPATHY
     Route: 058
     Dates: start: 20111217, end: 20111228

REACTIONS (4)
  - ARTHRITIS [None]
  - MUSCLE TIGHTNESS [None]
  - DYSARTHRIA [None]
  - PAIN [None]
